FAERS Safety Report 7793795-0 (Version None)
Quarter: 2011Q4

REPORT INFORMATION
  Report Type: 
  Country: None (occurrence: None)
  Receive Date: 20111003
  Receipt Date: 20110928
  Transmission Date: 20120403
  Serious: Yes (Life-Threatening, Other)
  Sender: FDA-Public Use
  Company Number: PHHY2011CA40073

PATIENT
  Sex: Female

DRUGS (3)
  1. EXJADE [Suspect]
     Dosage: 1500 MG,
     Route: 048
     Dates: start: 20110101
  2. EXJADE [Suspect]
     Indication: MYELODYSPLASTIC SYNDROME
     Dosage: UNK UKN, UNK
     Dates: start: 20101129
  3. RAMIPRIL [Concomitant]
     Dosage: 2.5 MG, UNK
     Route: 048

REACTIONS (9)
  - METASTASES TO LIVER [None]
  - VERTIGO [None]
  - MUSCLE DISORDER [None]
  - DYSPNOEA [None]
  - ABDOMINAL DISCOMFORT [None]
  - EAR INFECTION [None]
  - ABDOMINAL DISTENSION [None]
  - SERUM FERRITIN INCREASED [None]
  - FATIGUE [None]
